FAERS Safety Report 25895660 (Version 2)
Quarter: 2025Q4

REPORT INFORMATION
  Report Type: Spontaneous
  Country: CA (occurrence: CA)
  Receive Date: 20251008
  Receipt Date: 20251126
  Transmission Date: 20260117
  Serious: Yes (Other)
  Sender: PFIZER
  Company Number: CA-PFIZER INC-202500073497

PATIENT
  Age: 55 Year
  Sex: Female

DRUGS (12)
  1. SOMAVERT [Suspect]
     Active Substance: PEGVISOMANT
     Indication: Acromegaly
     Dosage: 10 MG, 1X/DAY
     Route: 058
     Dates: start: 20180115, end: 2018
  2. SOMAVERT [Suspect]
     Active Substance: PEGVISOMANT
     Dosage: 5 MG, 1X/DAY
     Route: 058
     Dates: start: 2018, end: 2018
  3. SOMAVERT [Suspect]
     Active Substance: PEGVISOMANT
     Dosage: 10 MG, 1X/DAY
     Route: 058
     Dates: start: 2018, end: 201809
  4. SOMAVERT [Suspect]
     Active Substance: PEGVISOMANT
     Dosage: 20 MG, 1X/DAY
     Route: 058
     Dates: start: 201809
  5. SOMAVERT [Suspect]
     Active Substance: PEGVISOMANT
     Dosage: 30 MG, 1X/DAY
     Route: 058
     Dates: end: 2019
  6. SOMAVERT [Suspect]
     Active Substance: PEGVISOMANT
     Dosage: 25 MG, 1X/DAY
     Route: 058
     Dates: start: 2019, end: 202309
  7. SOMAVERT [Suspect]
     Active Substance: PEGVISOMANT
     Dosage: 30 MG, ALTERNATE DAY
     Route: 058
     Dates: start: 202309, end: 2025
  8. SOMAVERT [Suspect]
     Active Substance: PEGVISOMANT
     Dosage: 30 MG, 1X/DAY
     Route: 058
     Dates: start: 2025
  9. NORVASC [Concomitant]
     Active Substance: AMLODIPINE BESYLATE
     Dosage: STOP DATE IS MAY/JUN2016
     Route: 048
     Dates: start: 20160502, end: 2016
  10. NORVASC [Concomitant]
     Active Substance: AMLODIPINE BESYLATE
     Dosage: START DATE IS MAY/JUN2016
     Route: 048
     Dates: start: 2016
  11. PERINDOPRIL ARGININE [Concomitant]
     Active Substance: PERINDOPRIL ARGININE
     Dosage: 4 MG, 1X/DAY
     Route: 048
  12. LANREOTIDE [Concomitant]
     Active Substance: LANREOTIDE
     Dosage: EVERY 4 WEEKS
     Route: 030

REACTIONS (3)
  - Cholelithiasis [Unknown]
  - Insulin-like growth factor increased [Unknown]
  - Injection site mass [Unknown]

NARRATIVE: CASE EVENT DATE: 20250101
